FAERS Safety Report 22256910 (Version 1)
Quarter: 2023Q2

REPORT INFORMATION
  Report Type: Report from Study
  Country: US (occurrence: US)
  Receive Date: 20230426
  Receipt Date: 20230426
  Transmission Date: 20230722
  Serious: Yes (Other)
  Sender: FDA-Public Use
  Company Number: US-PFIZER INC-PV202300072282

PATIENT
  Age: 54 Year
  Sex: Male

DRUGS (11)
  1. ALDACTONE [Suspect]
     Active Substance: SPIRONOLACTONE
     Dosage: UNK
  2. REMODULIN [Suspect]
     Active Substance: TREPROSTINIL
     Indication: Pulmonary arterial hypertension
     Dosage: 0.018 UG/KG
     Route: 058
  3. REMODULIN [Suspect]
     Active Substance: TREPROSTINIL
     Dosage: UNK
     Route: 058
     Dates: start: 20230206
  4. REMODULIN [Suspect]
     Active Substance: TREPROSTINIL
     Dosage: 0.021 UG/KG
     Route: 058
  5. REMODULIN [Suspect]
     Active Substance: TREPROSTINIL
     Dosage: UNK
     Route: 058
     Dates: start: 202301, end: 20230212
  6. REMODULIN [Suspect]
     Active Substance: TREPROSTINIL
     Dosage: UNK
     Route: 058
     Dates: start: 20230212
  7. REMODULIN [Suspect]
     Active Substance: TREPROSTINIL
     Dosage: UNK
     Route: 058
     Dates: start: 20230212
  8. REMODULIN [Suspect]
     Active Substance: TREPROSTINIL
     Dosage: 0.022 UG/KG
     Dates: start: 20230212
  9. REMODULIN [Suspect]
     Active Substance: TREPROSTINIL
     Dosage: 0.022 UG/KG
     Route: 058
     Dates: start: 202302
  10. LOSARTAN [Suspect]
     Active Substance: LOSARTAN
     Dosage: UNK
  11. CARVEDILOL [Suspect]
     Active Substance: CARVEDILOL
     Dosage: UNK

REACTIONS (9)
  - Bradycardia [Recovered/Resolved]
  - Syncope [Unknown]
  - Dizziness postural [Unknown]
  - Flushing [Unknown]
  - Hypotension [Recovered/Resolved]
  - Headache [Unknown]
  - Fatigue [Unknown]
  - Malaise [Recovered/Resolved]
  - Nausea [Recovered/Resolved]

NARRATIVE: CASE EVENT DATE: 20230101
